FAERS Safety Report 5852345-6 (Version None)
Quarter: 2008Q3

REPORT INFORMATION
  Report Type: 
  Country: None (occurrence: None)
  Receive Date: 20080821
  Receipt Date: 20080811
  Transmission Date: 20090109
  Serious: Yes (Hospitalization, Other)
  Sender: FDA-Public Use
  Company Number: US-ROCHE-562015

PATIENT
  Sex: Male
  Weight: 64.4 kg

DRUGS (2)
  1. ACCUTANE [Suspect]
     Indication: ACNE
     Route: 065
     Dates: start: 19901101, end: 19910201
  2. ACCUTANE [Suspect]
     Route: 065
     Dates: start: 19930901, end: 19931001

REACTIONS (4)
  - COLITIS ULCERATIVE [None]
  - ILEUS [None]
  - INFLAMMATORY BOWEL DISEASE [None]
  - SMALL INTESTINAL OBSTRUCTION [None]
